FAERS Safety Report 12817933 (Version 1)
Quarter: 2016Q4

REPORT INFORMATION
  Report Type: Spontaneous
  Country: US (occurrence: US)
  Receive Date: 20161006
  Receipt Date: 20161006
  Transmission Date: 20170207
  Serious: No
  Sender: FDA-Public Use
  Company Number: US-BAYER-2016-184250

PATIENT
  Age: 3 Year
  Sex: Male

DRUGS (2)
  1. CLARITIN REDITABS [Suspect]
     Active Substance: LORATADINE
     Indication: HYPERSENSITIVITY
     Dosage: 0.5 DF, QD -AS NEEDED
     Dates: start: 20160921, end: 20160921
  2. CLARITIN REDITABS [Suspect]
     Active Substance: LORATADINE
     Indication: HYPERSENSITIVITY
     Dosage: 0.5 DF, QD -AS NEEDED
     Dates: start: 20160914, end: 20160920

REACTIONS (4)
  - Extra dose administered [Recovered/Resolved]
  - Somnolence [None]
  - Dizziness [None]
  - Off label use [Recovered/Resolved]

NARRATIVE: CASE EVENT DATE: 201609
